FAERS Safety Report 5852089-0 (Version None)
Quarter: 2008Q3

REPORT INFORMATION
  Report Type: 
  Country: None (occurrence: None)
  Receive Date: 20080819
  Receipt Date: 20080819
  Transmission Date: 20090109
  Serious: Yes (Hospitalization)
  Sender: FDA-Public Use
  Company Number: None

PATIENT
  Age: 23 Year
  Sex: Male
  Weight: 69.8 kg

DRUGS (11)
  1. METHOTREXATE [Suspect]
     Indication: LYMPHOMA
     Dosage: 1200 MG/M2 BOLU IV 250 MG/M2 PER HR X23 HRS IV
     Route: 042
     Dates: start: 20080331, end: 20080401
  2. HYDRATION [Concomitant]
  3. BICARB DRIP [Concomitant]
  4. FORTAZ [Concomitant]
  5. MYCELEX [Concomitant]
  6. NEUPOGEN [Concomitant]
  7. FLUCONAZOLE [Concomitant]
  8. PROZAC [Concomitant]
  9. LAMICTAL [Concomitant]
  10. ARA-C [Concomitant]
  11. LEUCOVORIN CALCIUM [Concomitant]

REACTIONS (2)
  - BLOOD CREATININE INCREASED [None]
  - CRYSTAL URINE PRESENT [None]
